FAERS Safety Report 25785624 (Version 1)
Quarter: 2025Q3

REPORT INFORMATION
  Report Type: Spontaneous
  Country: TR (occurrence: TR)
  Receive Date: 20250910
  Receipt Date: 20250910
  Transmission Date: 20251021
  Serious: Yes (Death)
  Sender: ASTELLAS
  Company Number: TR-ASTELLAS-2025-AER-049732

PATIENT
  Age: 75 Year
  Sex: Female
  Weight: 100 kg

DRUGS (4)
  1. PADCEV [Interacting]
     Active Substance: ENFORTUMAB VEDOTIN-EJFV
     Indication: Bladder cancer
     Route: 042
     Dates: start: 20250808, end: 20250829
  2. PADCEV [Interacting]
     Active Substance: ENFORTUMAB VEDOTIN-EJFV
     Indication: Metastases to lung
  3. KEYTRUDA [Interacting]
     Active Substance: PEMBROLIZUMAB
     Indication: Bladder cancer
     Route: 042
     Dates: start: 20250808, end: 20250829
  4. KEYTRUDA [Interacting]
     Active Substance: PEMBROLIZUMAB
     Indication: Metastases to lung

REACTIONS (2)
  - Myelosuppression [Fatal]
  - Drug interaction [Unknown]

NARRATIVE: CASE EVENT DATE: 20250801
